FAERS Safety Report 5467555-X (Version None)
Quarter: 2007Q3

REPORT INFORMATION
  Report Type: 
  Country: None (occurrence: None)
  Receive Date: 20070921
  Receipt Date: 20070914
  Transmission Date: 20080115
  Serious: Yes (Hospitalization)
  Sender: FDA-Public Use
  Company Number: DSU-2007-00610

PATIENT
  Age: 67 Year
  Sex: Female
  Weight: 99.7913 kg

DRUGS (6)
  1. BENICAR [Suspect]
     Indication: HYPERTENSION
     Dosage: 80 MG (40 MG,2 IN 1 D), PER ORAL; 40 MG (40 MG,1 IN 1 D), PER ORAL
     Route: 048
     Dates: start: 20050101
  2. BENICAR [Suspect]
     Indication: HYPERTENSION
     Dosage: 80 MG (40 MG,2 IN 1 D), PER ORAL; 40 MG (40 MG,1 IN 1 D), PER ORAL
     Route: 048
     Dates: start: 20070801
  3. NORVASC [Concomitant]
  4. GLUCOVANCE (METFORMIN HYDROCHLORIDE, GLIBENCLAMIDE) (METFORMIN HYDROCH [Concomitant]
  5. VYTORIN [Concomitant]
  6. TRICOR [Concomitant]

REACTIONS (2)
  - CORONARY ARTERIAL STENT INSERTION [None]
  - HEART RATE IRREGULAR [None]
